FAERS Safety Report 5657318-4 (Version None)
Quarter: 2008Q1

REPORT INFORMATION
  Report Type: 
  Country: None (occurrence: None)
  Receive Date: 20080310
  Receipt Date: 20080227
  Transmission Date: 20080703
  Serious: Yes (Death, Hospitalization)
  Sender: FDA-Public Use
  Company Number: JP-PFIZER INC-2008010683

PATIENT
  Sex: Male

DRUGS (5)
  1. NORVASC [Suspect]
     Indication: HYPERTENSION
     Dosage: DAILY DOSE:5MG-FREQ:FREQUENCY: QD
     Route: 048
     Dates: start: 20071214, end: 20080131
  2. DIOVAN [Suspect]
     Indication: HYPERTENSION
     Dosage: DAILY DOSE:80MG-FREQ:FREQUENCY: QD
     Route: 048
     Dates: start: 20071215, end: 20080131
  3. TAKEPRON [Concomitant]
     Dosage: DAILY DOSE:30MG
     Route: 048
     Dates: start: 20061005, end: 20080131
  4. PAXIL [Concomitant]
     Route: 048
     Dates: start: 20060122, end: 20080131
  5. DEPAS [Concomitant]
     Route: 048
     Dates: start: 20061211, end: 20080131

REACTIONS (3)
  - PLATELET COUNT DECREASED [None]
  - SEPSIS [None]
  - WHITE BLOOD CELL COUNT DECREASED [None]
